FAERS Safety Report 19679416 (Version 3)
Quarter: 2023Q1

REPORT INFORMATION
  Report Type: Spontaneous
  Country: CH (occurrence: CH)
  Receive Date: 20210810
  Receipt Date: 20230224
  Transmission Date: 20230418
  Serious: Yes (Hospitalization, Other)
  Sender: FDA-Public Use
  Company Number: None

PATIENT
  Sex: Female

DRUGS (34)
  1. FLURAZEPAM HYDROCHLORIDE [Suspect]
     Active Substance: FLURAZEPAM HYDROCHLORIDE
     Indication: Product used for unknown indication
     Dosage: 30 MILLIGRAM, QD, (1X/DAY), START DATE: 11-JUN-2021
     Route: 048
     Dates: end: 20210624
  2. PREGABALIN [Suspect]
     Active Substance: PREGABALIN
     Indication: Product used for unknown indication
     Dosage: 50 MILLIGRAM, Q3D
     Route: 048
     Dates: end: 20210623
  3. PREGABALIN [Suspect]
     Active Substance: PREGABALIN
     Dosage: 50 MILLIGRAM, Q3D (EVERY 3 DAYS, START 23-JUN-2021)
     Route: 048
     Dates: end: 20210627
  4. PREGABALIN [Suspect]
     Active Substance: PREGABALIN
     Dosage: 50 MILLIGRAM, QOD, ALTERNATE DAY (50 MILLIGRAM, EVERY 2 DAYS, START 23-JUN-2021)
     Route: 065
     Dates: end: 20210627
  5. PREGABALIN [Suspect]
     Active Substance: PREGABALIN
     Dosage: 50 MILLIGRAM, Q2D, START 23-JUN-2021
     Route: 065
     Dates: end: 20210624
  6. TIZANIDINE [Suspect]
     Active Substance: TIZANIDINE
     Indication: Product used for unknown indication
     Dosage: 2 MILLIGRAM, Q3D START DATE:04-JUN-2021
     Route: 048
     Dates: end: 20210623
  7. TIZANIDINE [Suspect]
     Active Substance: TIZANIDINE
     Dosage: 2 MILLIGRAM, QID (4X/DAY) START DATE:04-JUN-2021
     Route: 048
     Dates: end: 20210623
  8. ZOLPIDEM [Interacting]
     Active Substance: ZOLPIDEM TARTRATE
     Indication: Product used for unknown indication
     Dosage: 10 MILLIGRAM, QD, 1X/DAY (REGULAR TREATMENT)
     Route: 048
     Dates: end: 20210611
  9. ASTEMIZOLE [Suspect]
     Active Substance: ASTEMIZOLE
     Indication: Product used for unknown indication
     Dosage: 0.5 MILLIGRAM, Q3D
     Route: 048
     Dates: start: 20210602, end: 20210609
  10. ASTEMIZOLE [Suspect]
     Active Substance: ASTEMIZOLE
     Dosage: 0.5 MILLIGRAM, Q2D (ALTERNATE DAY)START DATE:09-JUN-2021
     Route: 048
     Dates: end: 20210611
  11. ASTEMIZOLE [Suspect]
     Active Substance: ASTEMIZOLE
     Dosage: 0.5 MILLIGRAM, QD START DATE: 11-JUN-2021
     Route: 048
     Dates: end: 20210623
  12. ASTEMIZOLE [Suspect]
     Active Substance: ASTEMIZOLE
     Dosage: 0.5 MILLIGRAM (AS NECESSARY) START DATE:09-JUN-2021
     Route: 048
     Dates: end: 20210629
  13. ASTEMIZOLE [Suspect]
     Active Substance: ASTEMIZOLE
     Dosage: 0.5 MILLIGRAM, QD, (1X/DAY)  START DATE:11-JUN-2021
     Route: 048
     Dates: end: 20210624
  14. CYMBALTA [Suspect]
     Active Substance: DULOXETINE HYDROCHLORIDE
     Indication: Product used for unknown indication
     Dosage: 30 MILLIGRAM, QD
     Route: 048
     Dates: start: 20210602, end: 20210614
  15. CYMBALTA [Suspect]
     Active Substance: DULOXETINE HYDROCHLORIDE
     Dosage: 60 MILLIGRAM, QD START DATE:14-JUN-2021
     Route: 048
     Dates: end: 20210618
  16. CYMBALTA [Suspect]
     Active Substance: DULOXETINE HYDROCHLORIDE
     Dosage: 90 MILLIGRAM, QD (START DATE:18-JUN-2021
     Route: 048
     Dates: end: 20210626
  17. CYMBALTA [Suspect]
     Active Substance: DULOXETINE HYDROCHLORIDE
     Dosage: 90 MILLIGRAM, QD, (1X/DAY) (START DATE:18-JUN-2021 )
     Route: 048
     Dates: end: 20210624
  18. DIFLUCAN [Suspect]
     Active Substance: FLUCONAZOLE
     Indication: Fungal infection
     Dosage: 400 MILLIGRAM, QD (1X/DAY) START DATE:18-JUN-2021
     Route: 048
     Dates: end: 20210623
  19. PALEXIA [Suspect]
     Active Substance: TAPENTADOL HYDROCHLORIDE
     Indication: Product used for unknown indication
     Dosage: 50 MILLIGRAM, QID START DATE: 04-JUN-2021
     Route: 048
     Dates: end: 20210618
  20. PALEXIA [Suspect]
     Active Substance: TAPENTADOL HYDROCHLORIDE
     Dosage: 50 MILLIGRAM , (AS NECESSARY), START DATE: 04-JUN-2021
     Route: 048
     Dates: end: 20210628
  21. ACETAMINOPHEN [Concomitant]
     Active Substance: ACETAMINOPHEN
     Dosage: UNK
     Route: 065
     Dates: start: 20210601
  22. THIAMINE HYDROCHLORIDE [Concomitant]
     Active Substance: THIAMINE HYDROCHLORIDE
     Dosage: UNK, START DATE: 26-JUN-2021 00:00
     Route: 065
     Dates: end: 20210630
  23. ENOXAPARIN SODIUM [Concomitant]
     Active Substance: ENOXAPARIN SODIUM
     Dosage: UNK START DATE:26-JUN-2021
     Route: 065
  24. FOLIC ACID [Concomitant]
     Active Substance: FOLIC ACID
     Dosage: UNK START DATE: 26-JUN-2021
     Route: 065
  25. NEXIUM [Concomitant]
     Active Substance: ESOMEPRAZOLE MAGNESIUM
     Dosage: UNK
     Route: 065
  26. PERINDOPRIL [Concomitant]
     Active Substance: PERINDOPRIL
     Dosage: UNK
     Route: 065
  27. SODIUM PICOSULFATE [Concomitant]
     Active Substance: SODIUM PICOSULFATE
     Dosage: UNK START DATE:18-JUN-2021
     Route: 065
  28. MOVICOL [Concomitant]
     Active Substance: POLYETHYLENE GLYCOL 3350\POTASSIUM CHLORIDE\SODIUM BICARBONATE\SODIUM CHLORIDE
     Dosage: UNK, START 18-JUN-2021
     Route: 065
  29. MORPHINE [Concomitant]
     Active Substance: MORPHINE
     Dosage: UNK (AS NECESSARY) START DATE :26-JUN-2021
     Route: 065
  30. FREKA-CLYSS [Concomitant]
     Dosage: UNK, (AS NECESSARY) START 18-JUN-2021
     Route: 065
  31. PREGABALIN [Concomitant]
     Active Substance: PREGABALIN
     Dosage: UNK
     Route: 065
     Dates: end: 20210627
  32. NYSTATIN [Concomitant]
     Active Substance: NYSTATIN
     Dosage: UNK, START DATE 18-JUN-2021
     Route: 065
     Dates: end: 20210628
  33. MIRABEGRON [Concomitant]
     Active Substance: MIRABEGRON
     Dosage: UNK
     Route: 065
     Dates: end: 20210626
  34. TROSPIUM [Concomitant]
     Active Substance: TROSPIUM
     Dosage: UNK
     Route: 065
     Dates: end: 20210626

REACTIONS (4)
  - Confusional state [Recovered/Resolved]
  - Urinary retention [Recovered/Resolved]
  - Sedation [Recovered/Resolved]
  - Drug interaction [Recovered/Resolved]

NARRATIVE: CASE EVENT DATE: 20210602
